FAERS Safety Report 5585855-X (Version None)
Quarter: 2008Q1

REPORT INFORMATION
  Report Type: 
  Country: None (occurrence: None)
  Receive Date: 20080109
  Receipt Date: 20071108
  Transmission Date: 20080703
  Serious: Yes (Hospitalization)
  Sender: FDA-Public Use
  Company Number: GB-RANBAXY-2007RR-11364

PATIENT

DRUGS (2)
  1. TERBINAFINE HCL [Suspect]
     Indication: ONYCHOMYCOSIS
     Dosage: 250 MG, UNK
     Route: 048
     Dates: start: 20070820, end: 20071001
  2. ORLISTAT [Concomitant]
     Indication: OBESITY
     Dosage: 120 MG, UNK
     Route: 048
     Dates: start: 20070910

REACTIONS (3)
  - BLOOD BLISTER [None]
  - PURPURA [None]
  - THROMBOCYTOPENIA [None]
